FAERS Safety Report 10984208 (Version 1)
Quarter: 2015Q2

REPORT INFORMATION
  Report Type: Spontaneous
  Country: NZ (occurrence: None)
  Receive Date: 20150401
  Receipt Date: 20150401
  Transmission Date: 20150821
  Serious: Yes (Other)
  Sender: FDA-Public Use
  Company Number: FK201501535

PATIENT
  Age: 67 Year
  Sex: Female

DRUGS (1)
  1. VASOPRESSIN. [Suspect]
     Active Substance: VASOPRESSIN
     Indication: HAEMOSTASIS
     Dosage: 17 UG, PRE AND 24 HOURS POST SURGERY
     Route: 058

REACTIONS (4)
  - Hyponatraemic seizure [None]
  - Nausea [None]
  - Malaise [None]
  - Urine output decreased [None]
